FAERS Safety Report 21886406 (Version 4)
Quarter: 2023Q4

REPORT INFORMATION
  Report Type: Other
  Country: CN (occurrence: None)
  Receive Date: 20230119
  Receipt Date: 20231101
  Transmission Date: 20240109
  Serious: Yes (Other)
  Sender: FDA-Public Use
  Company Number: CN-ROCHE-3246077

PATIENT
  Age: 56 Year
  Sex: Male

DRUGS (1)
  1. ALECENSA [Suspect]
     Active Substance: ALECTINIB HYDROCHLORIDE
     Indication: Lung neoplasm malignant
     Dosage: 150MG * 224CAPSULES
     Route: 048
     Dates: start: 20201110

REACTIONS (6)
  - Metastases to thorax [Recovered/Resolved]
  - Hepatic function abnormal [Recovering/Resolving]
  - Sinusitis [Recovering/Resolving]
  - Somnolence [Recovered/Resolved]
  - Breath odour [Not Recovered/Not Resolved]
  - Dyspepsia [Not Recovered/Not Resolved]

NARRATIVE: CASE EVENT DATE: 20201216
